FAERS Safety Report 5725336-3 (Version None)
Quarter: 2008Q2

REPORT INFORMATION
  Report Type: 
  Country: None (occurrence: None)
  Receive Date: 20080421
  Receipt Date: 20080409
  Transmission Date: 20081010
  Serious: Yes (Disabling, Other)
  Sender: FDA-Public Use
  Company Number: WSDF_00719

PATIENT
  Age: 60 Year
  Sex: Female
  Weight: 86 kg

DRUGS (1)
  1. WINRHO SDF [Suspect]
     Indication: IDIOPATHIC THROMBOCYTOPENIC PURPURA
     Dosage: 37.2 UG/KG ONCE IV
     Route: 042
     Dates: start: 20080320, end: 20080320

REACTIONS (2)
  - HAEMOLYSIS [None]
  - HYPERTENSION [None]
